FAERS Safety Report 25155422 (Version 1)
Quarter: 2025Q2

REPORT INFORMATION
  Report Type: Spontaneous
  Country: US (occurrence: None)
  Receive Date: 20250402
  Receipt Date: 20250402
  Transmission Date: 20250716
  Serious: No
  Sender: FDA-CTU
  Company Number: None

PATIENT
  Age: 51 Year
  Sex: Male

DRUGS (1)
  1. XDEMVY [Suspect]
     Active Substance: LOTILANER
     Indication: Acariasis
     Dosage: FREQUENCY : TWICE A DAY;?
     Route: 047
     Dates: start: 20250131

REACTIONS (5)
  - Eye swelling [None]
  - Eye irritation [None]
  - Eye abscess [None]
  - Eye pruritus [None]
  - Self-medication [None]

NARRATIVE: CASE EVENT DATE: 20250201
